FAERS Safety Report 6864623-2 (Version None)
Quarter: 2010Q3

REPORT INFORMATION
  Report Type: 
  Country: None (occurrence: None)
  Receive Date: 20100721
  Receipt Date: 20080607
  Transmission Date: 20110219
  Serious: No
  Sender: FDA-Public Use
  Company Number: US-PFIZER INC-2008028582

PATIENT
  Sex: Male
  Weight: 102.06 kg

DRUGS (24)
  1. CHANTIX [Suspect]
     Indication: SMOKING CESSATION THERAPY
     Route: 048
     Dates: start: 20080301
  2. PROTONIX [Concomitant]
  3. REGLAN [Concomitant]
  4. XANAX [Concomitant]
  5. SYNTHROID [Concomitant]
  6. MONTELUKAST SODIUM [Concomitant]
  7. ADVAIR DISKUS 100/50 [Concomitant]
  8. ALBUTEROL [Concomitant]
  9. ATROVENT [Concomitant]
  10. FLOVENT [Concomitant]
  11. OXYCONTIN [Concomitant]
  12. GLIMEPIRIDE [Concomitant]
  13. LANTUS [Concomitant]
  14. CARVEDILOL [Concomitant]
  15. TRICOR [Concomitant]
  16. CELEBREX [Concomitant]
  17. FUROSEMIDE [Concomitant]
  18. VITAMIN D [Concomitant]
  19. VITAMIN B-12 [Concomitant]
  20. FOLIC ACID [Concomitant]
  21. PROCRIT [Concomitant]
  22. DESFERAL [Concomitant]
  23. DEFERASIROX [Concomitant]
     Dosage: 5 EVERY 1 WEEKS
  24. VIAGRA [Concomitant]

REACTIONS (2)
  - PRURITUS [None]
  - RASH [None]
